FAERS Safety Report 21774579 (Version 1)
Quarter: 2022Q4

REPORT INFORMATION
  Report Type: Spontaneous
  Country: FR (occurrence: FR)
  Receive Date: 20221224
  Receipt Date: 20221224
  Transmission Date: 20230113
  Serious: Yes (Death, Other)
  Sender: FDA-Public Use
  Company Number: FR-BAXTER-2022BAX026252

PATIENT
  Age: 83 Year
  Sex: Female

DRUGS (3)
  1. BORTEZOMIB [Suspect]
     Active Substance: BORTEZOMIB
     Indication: Product used for unknown indication
     Dosage: UNK, 1.3 MG/M2/DOSE 1 DOSE(S)
     Route: 065
     Dates: end: 20210207
  2. CYCLOPHOSPHAMIDE [Suspect]
     Active Substance: CYCLOPHOSPHAMIDE
     Indication: Product used for unknown indication
     Dosage: UNK, 300 MG/DOSE 1 DOSE(S)
     Route: 065
     Dates: end: 20210207
  3. DEXAMETHASONE [Suspect]
     Active Substance: DEXAMETHASONE
     Indication: Product used for unknown indication
     Dosage: UNK, 20 MG/DOSE 1 DOSE(S)
     Route: 065
     Dates: end: 20210207

REACTIONS (2)
  - General physical health deterioration [Unknown]
  - Disease progression [Fatal]

NARRATIVE: CASE EVENT DATE: 20210207
